FAERS Safety Report 9239404 (Version 3)
Quarter: 2013Q2

REPORT INFORMATION
  Report Type: Report from Study
  Country: IT (occurrence: IT)
  Receive Date: 20130418
  Receipt Date: 20130612
  Transmission Date: 20140414
  Serious: Yes (Hospitalization)
  Sender: FDA-Public Use
  Company Number: IT-GILEAD-2012-0066835

PATIENT
  Age: 63 Year
  Sex: Male

DRUGS (10)
  1. BLINDED PLACEBO [Suspect]
     Indication: ANGINA PECTORIS
     Dosage: UNK
     Route: 048
     Dates: start: 20121003, end: 20121202
  2. BLINDED RANOLAZINE [Suspect]
     Indication: ANGINA PECTORIS
     Dosage: UNK
     Route: 048
     Dates: start: 20121003, end: 20121202
  3. CONCOR [Concomitant]
     Indication: CORONARY ARTERY DISEASE
     Dosage: UNK
     Route: 048
     Dates: start: 20030124, end: 20121203
  4. TRINIPLAS [Concomitant]
     Indication: CORONARY ARTERY DISEASE
     Dosage: UNK
     Route: 048
     Dates: start: 20030124, end: 20121203
  5. TIKLID [Concomitant]
     Indication: CORONARY ARTERY DISEASE
     Dosage: UNK
     Route: 048
     Dates: start: 20030124, end: 20121203
  6. VALPRESSION [Concomitant]
     Indication: HYPERTENSION
     Dosage: 80 MG, BID
     Route: 048
     Dates: start: 1987
  7. VALPRESSION [Concomitant]
     Dosage: 80 MG, QD
     Route: 048
     Dates: start: 20121203
  8. ADALAT CRONO [Concomitant]
     Indication: HYPERTENSION
     Dosage: UNK
     Route: 048
     Dates: start: 1987, end: 20121203
  9. ATORVASTATIN [Concomitant]
     Indication: DYSLIPIDAEMIA
     Dosage: 20 MG, QD
     Route: 048
     Dates: start: 19990101
  10. ATORVASTATIN [Concomitant]
     Dosage: 80 MG, QD
     Route: 048
     Dates: start: 20121203

REACTIONS (2)
  - Acute coronary syndrome [Recovered/Resolved]
  - Coronary artery disease [Recovered/Resolved]
